FAERS Safety Report 5761971-4 (Version None)
Quarter: 2008Q2

REPORT INFORMATION
  Report Type: 
  Country: None (occurrence: None)
  Receive Date: 20080603
  Receipt Date: 20080519
  Transmission Date: 20081010
  Serious: Yes (Other)
  Sender: FDA-Public Use
  Company Number: 2008S1008514

PATIENT
  Sex: Female

DRUGS (1)
  1. LORATADINE [Suspect]
     Indication: SEASONAL ALLERGY
     Dosage: 20 MG; ORAL
     Route: 048

REACTIONS (2)
  - AGGRESSION [None]
  - SUICIDAL BEHAVIOUR [None]
